FAERS Safety Report 13940674 (Version 1)
Quarter: 2017Q3

REPORT INFORMATION
  Report Type: Spontaneous
  Country: JP (occurrence: JP)
  Receive Date: 20170906
  Receipt Date: 20170906
  Transmission Date: 20171127
  Serious: Yes (Other)
  Sender: FDA-Public Use
  Company Number: JP-PFIZER INC-2017337371

PATIENT
  Age: 77 Year
  Sex: Female

DRUGS (4)
  1. CORTRIL [Suspect]
     Active Substance: HYDROCORTISONE
     Dosage: 10 MG, DAILY
     Route: 048
     Dates: start: 20050914, end: 20100404
  2. CORTRIL [Suspect]
     Active Substance: HYDROCORTISONE
     Dosage: 10 MG, DAILY
     Route: 048
     Dates: start: 20100413
  3. CORTRIL [Suspect]
     Active Substance: HYDROCORTISONE
     Dosage: 30 MG, DAILY
     Route: 048
     Dates: start: 20100405, end: 20100412
  4. CORTRIL [Suspect]
     Active Substance: HYDROCORTISONE
     Dosage: 15 MG, DAILY
     Route: 048
     Dates: end: 20170802

REACTIONS (2)
  - Hyponatraemia [Recovered/Resolved]
  - Hyperkalaemia [Recovered/Resolved]

NARRATIVE: CASE EVENT DATE: 20170803
